FAERS Safety Report 14454163 (Version 1)
Quarter: 2018Q1

REPORT INFORMATION
  Report Type: Report from Study
  Country: US (occurrence: US)
  Receive Date: 20180129
  Receipt Date: 20180129
  Transmission Date: 20180509
  Serious: Yes (Death, Other)
  Sender: FDA-Public Use
  Company Number: US-GILEAD-2017-0313215

PATIENT
  Age: 63 Year
  Sex: Male

DRUGS (3)
  1. RANOLAZINE. [Suspect]
     Active Substance: RANOLAZINE
     Indication: ANGINA PECTORIS
     Dosage: 1000 MG, FREQUENCY UNK
     Route: 048
  2. RANOLAZINE. [Suspect]
     Active Substance: RANOLAZINE
     Dosage: 1000 MG, FREQUENCY UNK
     Route: 048
     Dates: start: 20170604
  3. RANOLAZINE. [Suspect]
     Active Substance: RANOLAZINE
     Dosage: 1000 MG, FREQUENCY UNK
     Route: 048
     Dates: end: 201801

REACTIONS (4)
  - Intentional dose omission [Unknown]
  - Hepatic pain [Unknown]
  - Feeling abnormal [Unknown]
  - Death [Fatal]

NARRATIVE: CASE EVENT DATE: 201801
